FAERS Safety Report 9950776 (Version 2)
Quarter: 2014Q1

REPORT INFORMATION
  Report Type: Spontaneous
  Country: PR (occurrence: PR)
  Receive Date: 20140304
  Receipt Date: 20140304
  Transmission Date: 20141002
  Serious: No
  Sender: FDA-Public Use
  Company Number: PR-ABBVIE-12P-131-0932301-00

PATIENT
  Sex: Female
  Weight: 58.11 kg

DRUGS (5)
  1. HUMIRA [Suspect]
     Indication: RHEUMATOID ARTHRITIS
     Route: 058
     Dates: start: 2009, end: 201212
  2. HUMIRA [Suspect]
     Route: 058
     Dates: start: 201302
  3. PREDNISONE [Suspect]
     Indication: ARTHRITIS
     Route: 048
  4. CARAFATE [Concomitant]
     Indication: GASTRITIS
     Route: 048
  5. PREMASOL [Concomitant]
     Indication: GASTRITIS
     Route: 065

REACTIONS (7)
  - Oral candidiasis [Recovering/Resolving]
  - Pharyngeal erythema [Not Recovered/Not Resolved]
  - Back injury [Recovered/Resolved]
  - Injection site pain [Recovering/Resolving]
  - Oropharyngeal pain [Not Recovered/Not Resolved]
  - Chest pain [Recovered/Resolved]
  - Pharyngitis [Recovering/Resolving]
